FAERS Safety Report 6383429-4 (Version None)
Quarter: 2009Q3

REPORT INFORMATION
  Report Type: 
  Country: None (occurrence: None)
  Receive Date: 20090924
  Receipt Date: 20090612
  Transmission Date: 20100115
  Serious: No
  Sender: FDA-Public Use
  Company Number: US-CVT-090360

PATIENT
  Age: 79 Year
  Sex: Male

DRUGS (2)
  1. RANEXA [Suspect]
     Indication: ANGINA PECTORIS
     Dosage: 500 MG, BID, ORAL
     Route: 048
     Dates: start: 20090605, end: 20090608
  2. CONTRAST MEDIA [Suspect]
     Indication: CATHETERISATION CARDIAC
     Dosage: SINGLE
     Dates: start: 20090605, end: 20090605

REACTIONS (1)
  - RASH MACULAR [None]
